FAERS Safety Report 4443061-6 (Version None)
Quarter: 2004Q3

REPORT INFORMATION
  Report Type: 
  Country: None (occurrence: None)
  Receive Date: 20040903
  Receipt Date: 20040628
  Transmission Date: 20050211
  Serious: Yes (Other)
  Sender: FDA-Public Use
  Company Number: 2004UW13434

PATIENT
  Age: 48 Year
  Sex: Female
  Weight: 102.0593 kg

DRUGS (9)
  1. CRESTOR [Suspect]
     Indication: BLOOD CHOLESTEROL INCREASED
     Dosage: 10 MG DAILY PO
     Route: 048
  2. CATAPRES [Concomitant]
  3. LOPID [Concomitant]
  4. MAXZIDE [Concomitant]
  5. POTASSIUM [Concomitant]
  6. PREMARIN [Concomitant]
  7. CALCIUM WITH VITAMIN D [Concomitant]
  8. ASPIRIN ENTERIC COATED K.P. [Concomitant]
  9. VITAMIN E [Concomitant]

REACTIONS (3)
  - BLOODY DISCHARGE [None]
  - CONSTIPATION [None]
  - HAEMATOCHEZIA [None]
